FAERS Safety Report 8903552 (Version 1)
Quarter: 2012Q4

REPORT INFORMATION
  Report Type: 
  Country: US (occurrence: US)
  Receive Date: 20121113
  Receipt Date: 20121113
  Transmission Date: 20130627
  Serious: No
  Sender: FDA-Public Use
  Company Number: US-PFIZER INC-2012282675

PATIENT

DRUGS (1)
  1. PRISTIQ [Suspect]
     Indication: DEPRESSION
     Dosage: UNK

REACTIONS (4)
  - Lymphadenopathy [Unknown]
  - Inflammation [Unknown]
  - Headache [Unknown]
  - Drug ineffective [Unknown]
